FAERS Safety Report 9507779 (Version 2)
Quarter: 2013Q4

REPORT INFORMATION
  Report Type: Report from Study
  Country: US (occurrence: US)
  Receive Date: 20130909
  Receipt Date: 20131108
  Transmission Date: 20140711
  Serious: Yes (Hospitalization)
  Sender: FDA-Public Use
  Company Number: US-ROCHE-1271670

PATIENT
  Sex: Female

DRUGS (5)
  1. RITUXAN [Suspect]
     Indication: THROMBOTIC THROMBOCYTOPENIC PURPURA
     Route: 065
  2. IRON SULFATE [Concomitant]
  3. KEPPRA [Concomitant]
     Route: 065
  4. ASPIRIN [Concomitant]
  5. FOLIC ACID [Concomitant]

REACTIONS (4)
  - Convulsion [Unknown]
  - Haemorrhage [Unknown]
  - Infarction [Unknown]
  - Maternal exposure during pregnancy [Unknown]
